FAERS Safety Report 5066123-1 (Version None)
Quarter: 2006Q3

REPORT INFORMATION
  Report Type: 
  Country: None (occurrence: None)
  Receive Date: 20060725
  Receipt Date: 20060717
  Transmission Date: 20061208
  Serious: Yes (Other)
  Sender: FDA-Public Use
  Company Number: 2006088219

PATIENT
  Age: 22 Year
  Sex: Female
  Weight: 52.1637 kg

DRUGS (2)
  1. UNISOM SLEEPGELS (DIPHENHYDRAMINE) [Suspect]
     Indication: INSOMNIA
     Dosage: 5 SLEEPGELS ONCE, ORAL
     Route: 048
     Dates: start: 20060715, end: 20060715
  2. MINOCYCLINE HCL [Concomitant]

REACTIONS (2)
  - CONFUSIONAL STATE [None]
  - INCORRECT DOSE ADMINISTERED [None]
